FAERS Safety Report 22259470 (Version 2)
Quarter: 2023Q2

REPORT INFORMATION
  Report Type: Spontaneous
  Country: JP (occurrence: JP)
  Receive Date: 20230427
  Receipt Date: 20230524
  Transmission Date: 20230722
  Serious: Yes (Other)
  Sender: FDA-Public Use
  Company Number: JP-AMGEN-JPNSP2023034723

PATIENT
  Sex: Female

DRUGS (3)
  1. BLINCYTO [Suspect]
     Active Substance: BLINATUMOMAB
     Indication: Acute lymphocytic leukaemia
     Dosage: 9 MICROGRAM
     Route: 040
     Dates: start: 20230217, end: 202302
  2. BLINCYTO [Suspect]
     Active Substance: BLINATUMOMAB
     Dosage: 18 MICROGRAM
     Route: 040
     Dates: start: 202302, end: 2023
  3. BLINCYTO [Suspect]
     Active Substance: BLINATUMOMAB
     Dosage: 28 MICROGRAM
     Route: 040
     Dates: start: 2023, end: 2023

REACTIONS (3)
  - Acute lymphocytic leukaemia [Not Recovered/Not Resolved]
  - Seizure [Recovered/Resolved]
  - Feeding disorder [Recovered/Resolved]

NARRATIVE: CASE EVENT DATE: 20230218
